FAERS Safety Report 8805814 (Version 1)
Quarter: 2012Q4

REPORT INFORMATION
  Report Type: Spontaneous
  Country: IN (occurrence: None)
  Receive Date: 20120917
  Receipt Date: 20120917
  Transmission Date: 20130627
  Serious: Yes (Hospitalization, Other)
  Sender: FDA-Public Use
  Company Number: 2012MA010945

PATIENT
  Sex: Female
  Weight: 2.35 kg

DRUGS (5)
  1. DICLOFENAC SODIUM [Suspect]
     Indication: DRUG EXPOSURE IN UTERO
     Route: 064
  2. AMOXICILLIN-CLAVULINIC ACID [Concomitant]
  3. METRONIDAZOLE [Concomitant]
  4. RANITIDINE [Concomitant]
  5. PARACETAMOL [Concomitant]

REACTIONS (6)
  - Caesarean section [None]
  - Oliguria [None]
  - Maternal drugs affecting foetus [None]
  - Hyperkalaemia [None]
  - Metabolic acidosis [None]
  - Renal failure neonatal [None]
